FAERS Safety Report 6428097-8 (Version None)
Quarter: 2009Q4

REPORT INFORMATION
  Report Type: 
  Country: None (occurrence: None)
  Receive Date: 20091105
  Receipt Date: 20091027
  Transmission Date: 20100525
  Serious: Yes (Hospitalization, Other)
  Sender: FDA-Public Use
  Company Number: US-AMGEN-QUU360718

PATIENT
  Sex: Female
  Weight: 58.5 kg

DRUGS (19)
  1. ENBREL [Suspect]
     Indication: RHEUMATOID ARTHRITIS
     Route: 058
     Dates: start: 20050706
  2. METHOTREXATE [Concomitant]
     Route: 048
     Dates: start: 20050706
  3. FOLIC ACID [Concomitant]
     Dates: start: 20050706
  4. PRILOSEC [Concomitant]
     Dates: start: 20051111
  5. SIMVASTATIN [Concomitant]
     Dates: start: 20080226
  6. CELEXA [Concomitant]
     Dates: start: 20090924
  7. ALLEGRA [Concomitant]
     Dates: start: 20090924
  8. SYNTHROID [Concomitant]
     Dates: start: 20090924
  9. ARICEPT [Concomitant]
     Dates: start: 20090924
  10. IBUPROFEN [Concomitant]
  11. LEVOXYL [Concomitant]
  12. DITROPAN [Concomitant]
  13. FOSAMAX [Concomitant]
  14. CENTRUM SILVER [Concomitant]
  15. CALCIUM WITH VITAMIN D [Concomitant]
  16. VITAMIN E [Concomitant]
  17. VITAMIN B-12 [Concomitant]
  18. TENORETIC 100 [Concomitant]
  19. MIACALCIN [Concomitant]
     Route: 045

REACTIONS (16)
  - APHONIA [None]
  - BRONCHOSPASM [None]
  - EMPHYSEMA [None]
  - FALL [None]
  - GAIT DISTURBANCE [None]
  - INTERVERTEBRAL DISC PROTRUSION [None]
  - MUSCLE SPASMS [None]
  - MUSCULOSKELETAL STIFFNESS [None]
  - OSTEOPENIA [None]
  - PAIN IN EXTREMITY [None]
  - PLANTAR FASCIITIS [None]
  - PNEUMONIA [None]
  - POST PROCEDURAL PNEUMONIA [None]
  - RAYNAUD'S PHENOMENON [None]
  - RHEUMATOID ARTHRITIS [None]
  - WHEEZING [None]
